FAERS Safety Report 5456590-3 (Version None)
Quarter: 2007Q3

REPORT INFORMATION
  Report Type: 
  Country: None (occurrence: None)
  Receive Date: 20070918
  Receipt Date: 20070910
  Transmission Date: 20080115
  Serious: Yes (Other)
  Sender: FDA-Public Use
  Company Number: HQWYE535414AUG07

PATIENT
  Sex: Female
  Weight: 63.6 kg

DRUGS (2)
  1. ADVIL LIQUI-GELS [Suspect]
     Dosage: 2 TABLETS, FREQUENCY UNKNOWN
     Route: 048
  2. ORTHO TRI-CYCLEN [Concomitant]
     Dosage: UNKNOWN
     Route: 065

REACTIONS (3)
  - STEVENS-JOHNSON SYNDROME [None]
  - TOXIC EPIDERMAL NECROLYSIS [None]
  - URINARY TRACT INFECTION [None]
